FAERS Safety Report 8999513 (Version 1)
Quarter: 2013Q1

REPORT INFORMATION
  Report Type: Spontaneous
  Country: US (occurrence: US)
  Receive Date: 20130103
  Receipt Date: 20130103
  Transmission Date: 20140127
  Serious: No
  Sender: FDA-Public Use
  Company Number: US-BAYER-2013-000287

PATIENT
  Age: 86 Year
  Sex: Female
  Weight: 49 kg

DRUGS (9)
  1. ALEVE CAPLET/TABLET,MIDOL EXTENDED RELIEF CAPLET [Suspect]
     Indication: PAIN
     Dosage: 1 DF, PRN
     Route: 048
     Dates: start: 1994
  2. IBUPROFEN [Concomitant]
  3. BAYER ASPIRIN REGIMEN REGULAR 325 MG STRENGTH [Concomitant]
  4. TUMS [CALCIUM CARBONATE] [Concomitant]
  5. CALCIUM [Concomitant]
  6. ACETAMINOPHEN [Concomitant]
  7. VITAMIN D [Concomitant]
  8. ALIVE MULTIVITAMINS FOR WOMEN [Concomitant]
  9. GLAUCOMA EYE DROPS [Concomitant]

REACTIONS (1)
  - Oropharyngeal pain [Not Recovered/Not Resolved]
